FAERS Safety Report 8551782-9 (Version None)
Quarter: 2012Q3

REPORT INFORMATION
  Report Type: 
  Country: None (occurrence: None)
  Receive Date: 20120730
  Receipt Date: 20120720
  Transmission Date: 20120928
  Serious: Yes (Hospitalization)
  Sender: FDA-Public Use
  Company Number: US-ELI_LILLY_AND_COMPANY-US201207006796

PATIENT
  Age: 90 Year
  Sex: Female

DRUGS (11)
  1. AMLODIPINE [Concomitant]
     Dosage: UNK, UNKNOWN
  2. FORTEO [Suspect]
     Indication: OSTEOPOROSIS
     Dosage: 20 U, QD
     Dates: start: 20120625, end: 20120717
  3. BISOPROLOL FUMARATE [Concomitant]
     Dosage: UNK, UNKNOWN
  4. ASPIRIN [Concomitant]
     Dosage: UNK, UNKNOWN
  5. PRAVASTATIN [Concomitant]
     Dosage: UNK, UNKNOWN
  6. FERROUS SULFATE TAB [Concomitant]
     Dosage: UNK, UNKNOWN
  7. VITAMIN B-12 [Concomitant]
     Dosage: UNK, MONTHLY (1/M)
  8. ALBUTEROL SULFATE AND IPRATROPIUM BROMIDE [Concomitant]
     Dosage: UNK, UNKNOWN
  9. LEVETIRACETAM [Concomitant]
     Dosage: UNK, UNKNOWN
  10. AMIODARONE HCL [Concomitant]
     Dosage: UNK, UNKNOWN
  11. LOSARTAN POTASSIUM [Concomitant]
     Dosage: UNK, UNKNOWN

REACTIONS (1)
  - ABASIA [None]
